FAERS Safety Report 23631664 (Version 2)
Quarter: 2024Q2

REPORT INFORMATION
  Report Type: Report from Study
  Country: CA (occurrence: CA)
  Receive Date: 20240314
  Receipt Date: 20240402
  Transmission Date: 20240716
  Serious: Yes (Other)
  Sender: FDA-Public Use
  Company Number: CA-JNJFOC-20240115326

PATIENT
  Age: 11 Year
  Sex: Female

DRUGS (2)
  1. REMICADE [Suspect]
     Active Substance: INFLIXIMAB
     Indication: Crohn^s disease
     Dosage: INFUSIONS: 11?LAST INFUSED ON 03-JAN-2024
     Route: 041
     Dates: start: 20230420
  2. REMICADE [Suspect]
     Active Substance: INFLIXIMAB
     Route: 041
     Dates: start: 20230420

REACTIONS (6)
  - Heart disease congenital [Unknown]
  - Abdominal pain [Not Recovered/Not Resolved]
  - Blood iron decreased [Recovered/Resolved]
  - Alopecia [Unknown]
  - Off label use [Unknown]
  - Pallor [Not Recovered/Not Resolved]
